FAERS Safety Report 23730085 (Version 3)
Quarter: 2024Q2

REPORT INFORMATION
  Report Type: Other
  Country: US (occurrence: None)
  Receive Date: 20240411
  Receipt Date: 20240517
  Transmission Date: 20240716
  Serious: Yes (Hospitalization)
  Sender: FDA-Public Use
  Company Number: US-ROCHE-3540670

PATIENT
  Age: 58 Year
  Sex: Female

DRUGS (2)
  1. RITUXAN [Suspect]
     Active Substance: RITUXIMAB
     Indication: Rheumatoid arthritis
     Dosage: DAY 1 AND DAY 15. ANTICIPATED DATE OF TREATMENT: 01/APR/2024.,LAST DOSE WAS ON 27/OCT/2021, AND SHE
     Route: 041
     Dates: start: 20170214
  2. TRUXIMA [Concomitant]
     Active Substance: RITUXIMAB-ABBS

REACTIONS (1)
  - COVID-19 [Unknown]
